FAERS Safety Report 13383412 (Version 1)
Quarter: 2017Q1

REPORT INFORMATION
  Report Type: Spontaneous
  Country: FR (occurrence: FR)
  Receive Date: 20170329
  Receipt Date: 20170329
  Transmission Date: 20170429
  Serious: Yes (Hospitalization)
  Sender: FDA-Public Use
  Company Number: PHHY2017FR044537

PATIENT
  Age: 22 Year
  Sex: Male

DRUGS (1)
  1. TEGRETOL [Suspect]
     Active Substance: CARBAMAZEPINE
     Indication: AGGRESSION
     Dosage: 200 MG, QD
     Route: 048
     Dates: start: 20170311, end: 20170312

REACTIONS (1)
  - Meningism [Not Recovered/Not Resolved]

NARRATIVE: CASE EVENT DATE: 20170313
